FAERS Safety Report 15562530 (Version 3)
Quarter: 2019Q1

REPORT INFORMATION
  Report Type: Spontaneous
  Country: US (occurrence: US)
  Receive Date: 20181029
  Receipt Date: 20190306
  Transmission Date: 20190417
  Serious: Yes (Other)
  Sender: FDA-Public Use
  Company Number: US-PFIZER INC-2018433342

PATIENT
  Age: 53 Year
  Sex: Female
  Weight: 54.88 kg

DRUGS (2)
  1. FASLODEX [Concomitant]
     Active Substance: FULVESTRANT
     Indication: BREAST CANCER
     Dosage: 500 MG, MONTHLY
     Dates: start: 20180921
  2. IBRANCE [Suspect]
     Active Substance: PALBOCICLIB
     Indication: BREAST CANCER
     Dosage: 125 MG, CYCLIC (21 DAYS ON AND 7 DAYS OFF)
     Dates: start: 20180922, end: 2018

REACTIONS (6)
  - Nasal congestion [Unknown]
  - White blood cell count decreased [Unknown]
  - Oropharyngeal pain [Recovered/Resolved]
  - Fatigue [Unknown]
  - Insomnia [Unknown]
  - Cough [Recovering/Resolving]

NARRATIVE: CASE EVENT DATE: 201810
